FAERS Safety Report 5471078-1 (Version None)
Quarter: 2007Q3

REPORT INFORMATION
  Report Type: 
  Country: None (occurrence: None)
  Receive Date: 20070928
  Receipt Date: 20070926
  Transmission Date: 20080115
  Serious: Yes (Hospitalization)
  Sender: FDA-Public Use
  Company Number: DEWYE387927SEP07

PATIENT

DRUGS (1)
  1. REFACTO [Suspect]
     Indication: HAEMOPHILIA

REACTIONS (1)
  - KNEE ARTHROPLASTY [None]
